FAERS Safety Report 7491252-2 (Version None)
Quarter: 2011Q2

REPORT INFORMATION
  Report Type: 
  Country: None (occurrence: None)
  Receive Date: 20110519
  Receipt Date: 20110128
  Transmission Date: 20111010
  Serious: Yes (Other)
  Sender: FDA-Public Use
  Company Number: A0910212A

PATIENT
  Age: 67 Year
  Sex: Male

DRUGS (8)
  1. FLOVENT [Suspect]
     Indication: CHRONIC OBSTRUCTIVE PULMONARY DISEASE
     Route: 055
     Dates: start: 20070101
  2. NORVASC [Concomitant]
  3. MULTI-VITAMINS [Concomitant]
  4. ZEGERID [Concomitant]
  5. ASPIRIN [Concomitant]
     Dates: start: 20110427
  6. PLAVIX [Concomitant]
     Dates: start: 20110427
  7. DUONEB [Concomitant]
     Route: 055
  8. UNSPECIFIED MEDICATION [Concomitant]

REACTIONS (6)
  - HAEMORRHAGE [None]
  - DRY SKIN [None]
  - CANDIDIASIS [None]
  - CONTUSION [None]
  - SKIN DISCOLOURATION [None]
  - LIMB INJURY [None]
